FAERS Safety Report 4876777-8 (Version None)
Quarter: 2005Q4

REPORT INFORMATION
  Report Type: 
  Country: None (occurrence: None)
  Receive Date: 20051206
  Receipt Date: 20050805
  Transmission Date: 20060501
  Serious: No
  Sender: FDA-Public Use
  Company Number: USA050394561

PATIENT
  Age: 60 Year
  Sex: Female

DRUGS (12)
  1. CYMBALTA [Suspect]
     Indication: DIABETIC NEUROPATHY
     Dosage: 60 MG DAY
     Dates: start: 20050201
  2. LASIX [Concomitant]
  3. SPIRONOLACTONE [Concomitant]
  4. GLUCOPHAGE [Concomitant]
  5. GLYNASE [Concomitant]
  6. TOPROL-XL [Concomitant]
  7. NORVASC [Concomitant]
  8. SYNTHROID [Concomitant]
  9. CYTOMEL [Concomitant]
  10. OXYGEN [Concomitant]
  11. ASPIRIN [Concomitant]
  12. FERROUS GLUCONATE [Concomitant]

REACTIONS (12)
  - ABDOMINAL PAIN [None]
  - BREATH SOUNDS ABNORMAL [None]
  - BRONCHITIS [None]
  - DRY MOUTH [None]
  - HOT FLUSH [None]
  - HYPERHIDROSIS [None]
  - MUSCLE SPASMS [None]
  - NECK PAIN [None]
  - PNEUMONIA [None]
  - THERMAL BURN [None]
  - URINE OUTPUT INCREASED [None]
  - WHITE BLOOD CELL COUNT INCREASED [None]
